FAERS Safety Report 4559806-0 (Version None)
Quarter: 2005Q1

REPORT INFORMATION
  Report Type: 
  Country: None (occurrence: None)
  Receive Date: 20050107
  Receipt Date: 20041014
  Transmission Date: 20050727
  Serious: Yes (Other)
  Sender: FDA-Public Use
  Company Number: ENTC2004-0193(0)

PATIENT
  Age: 69 Year
  Sex: Female

DRUGS (4)
  1. STALEVO (UNKNOWN) (LEVODOPA, CARBIDOPA, ENTACAPONE) [Suspect]
     Indication: PARKINSON'S DISEASE
     Dosage: 50 MG/12.5 MG/200 MG BID, ORAL
     Route: 048
     Dates: start: 20040918
  2. NORVASC [Concomitant]
  3. AVAPRO [Concomitant]
  4. KETEK [Concomitant]

REACTIONS (3)
  - ASTHENIA [None]
  - BLOOD PRESSURE DECREASED [None]
  - TREMOR [None]
